FAERS Safety Report 18903072 (Version 1)
Quarter: 2021Q1

REPORT INFORMATION
  Report Type: Spontaneous
  Country: US (occurrence: US)
  Receive Date: 20210216
  Receipt Date: 20210216
  Transmission Date: 20210420
  Serious: Yes (Death)
  Sender: FDA-Public Use
  Company Number: None

PATIENT
  Age: 87 Year
  Sex: Female

DRUGS (2)
  1. HUMIRA [Suspect]
     Active Substance: ADALIMUMAB
     Indication: OSTEOPOROSIS
     Dosage: ?          OTHER FREQUENCY:EVERY 10 DAYS;?
     Route: 058
     Dates: start: 201510
  2. HUMIRA [Suspect]
     Active Substance: ADALIMUMAB
     Indication: RHEUMATOID ARTHRITIS
     Dosage: ?          OTHER FREQUENCY:EVERY 10 DAYS;?
     Route: 058
     Dates: start: 201510

REACTIONS (1)
  - Death [None]
